FAERS Safety Report 16042611 (Version 1)
Quarter: 2019Q1

REPORT INFORMATION
  Report Type: Spontaneous
  Country: GB (occurrence: GB)
  Receive Date: 20190306
  Receipt Date: 20190306
  Transmission Date: 20190418
  Serious: Yes (Disabling, Other)
  Sender: FDA-Public Use
  Company Number: GB-ASTRAZENECA-2019SE33221

PATIENT
  Age: 61 Year
  Sex: Female

DRUGS (8)
  1. TEMAZEPAM. [Concomitant]
     Active Substance: TEMAZEPAM
  2. CODEINE PHOSPHATE [Concomitant]
     Active Substance: CODEINE PHOSPHATE
  3. STUGERON [Concomitant]
     Active Substance: CINNARIZINE
  4. ATORVASTATIN [Concomitant]
     Active Substance: ATORVASTATIN
  5. BUPRENORPHINE. [Concomitant]
     Active Substance: BUPRENORPHINE
  6. NIFEDIPINE. [Concomitant]
     Active Substance: NIFEDIPINE
  7. SERTRALINE [Concomitant]
     Active Substance: SERTRALINE HYDROCHLORIDE
  8. QUETIAPINE. [Suspect]
     Active Substance: QUETIAPINE
     Indication: HALLUCINATION
     Dosage: 25.0MG UNKNOWN
     Route: 048
     Dates: start: 20181128, end: 20181201

REACTIONS (7)
  - Dysgeusia [Recovering/Resolving]
  - Muscle spasms [Recovering/Resolving]
  - Gait disturbance [Recovering/Resolving]
  - Tachycardia [Recovering/Resolving]
  - Flushing [Recovering/Resolving]
  - Visual impairment [Recovering/Resolving]
  - Mouth ulceration [Recovering/Resolving]

NARRATIVE: CASE EVENT DATE: 20181128
